FAERS Safety Report 5885478-9 (Version None)
Quarter: 2008Q3

REPORT INFORMATION
  Report Type: 
  Country: None (occurrence: None)
  Receive Date: 20080916
  Receipt Date: 20080903
  Transmission Date: 20090109
  Serious: Yes (Other)
  Sender: FDA-Public Use
  Company Number: GB-ELI_LILLY_AND_COMPANY-GB200809001922

PATIENT
  Age: 14 Year
  Sex: Male
  Weight: 51.2 kg

DRUGS (2)
  1. STRATTERA [Suspect]
     Indication: ATTENTION DEFICIT/HYPERACTIVITY DISORDER
     Dosage: 25 MG, UNKNOWN
     Route: 048
     Dates: start: 20080722, end: 20080822
  2. STRATTERA [Suspect]
     Dosage: 40 MG, UNKNOWN
     Route: 048

REACTIONS (1)
  - HEPATIC FUNCTION ABNORMAL [None]
